FAERS Safety Report 5698811-8 (Version None)
Quarter: 2008Q2

REPORT INFORMATION
  Report Type: 
  Country: None (occurrence: None)
  Receive Date: 20080403
  Receipt Date: 20080328
  Transmission Date: 20081010
  Serious: Yes (Death, Hospitalization)
  Sender: FDA-Public Use
  Company Number: 217-C5013-08031854

PATIENT
  Age: 74 Year
  Sex: Male
  Weight: 55 kg

DRUGS (3)
  1. CC-5013\ PLACEBO (LENALIDOMIDE) (CAPSULES) [Suspect]
     Indication: MULTIPLE MYELOMA
     Dosage: 10 MG, 1 IN 1 D, ORAL
     Route: 048
     Dates: start: 20080225, end: 20080316
  2. MELPHALAN (MELPHALAN) [Suspect]
     Indication: MULTIPLE MYELOMA
     Dosage: 12 MG, 1 IN 1 D
     Dates: start: 20080225, end: 20080228
  3. PREDNISONE TAB [Suspect]
     Indication: MULTIPLE MYELOMA
     Dosage: 124 MG, 1 IN 1 D
     Dates: start: 20080225, end: 20080228

REACTIONS (3)
  - DEHYDRATION [None]
  - DIARRHOEA [None]
  - HYPOTENSION [None]
